FAERS Safety Report 6021228-3 (Version None)
Quarter: 2008Q4

REPORT INFORMATION
  Report Type: 
  Country: None (occurrence: None)
  Receive Date: 20081229
  Receipt Date: 20081216
  Transmission Date: 20090506
  Serious: Yes (Life-Threatening)
  Sender: FDA-Public Use
  Company Number: FR-WYE-H07409108

PATIENT
  Sex: Male

DRUGS (3)
  1. CORDARONE [Suspect]
     Indication: ATRIAL FIBRILLATION
     Dosage: UNSPECIFIED
     Route: 048
  2. TENORMIN [Interacting]
     Dosage: 6 MG DAILY AND 5 MG IN BOLUS PER 24 HOURS
     Route: 042
     Dates: start: 20080910, end: 20080912
  3. SOLIAN [Interacting]
     Indication: MENTAL DISORDER
     Route: 048
     Dates: start: 20080905, end: 20080912

REACTIONS (3)
  - BRADYCARDIA [None]
  - CARDIAC ARREST [None]
  - DRUG INTERACTION [None]
